FAERS Safety Report 23334456 (Version 1)
Quarter: 2023Q4

REPORT INFORMATION
  Report Type: Spontaneous
  Country: US (occurrence: US)
  Receive Date: 20231224
  Receipt Date: 20231224
  Transmission Date: 20240109
  Serious: No
  Sender: FDA-Public Use
  Company Number: US-VIIV HEALTHCARE LIMITED-US2023170917

PATIENT
  Age: 28 Year
  Sex: Female

DRUGS (2)
  1. RILPIVIRINE [Suspect]
     Active Substance: RILPIVIRINE
     Indication: HIV test
     Dosage: UNK, Q2M 600/900, INJECTABLE
     Route: 065
     Dates: start: 20230927
  2. CABOTEGRAVIR [Suspect]
     Active Substance: CABOTEGRAVIR
     Indication: HIV test
     Dosage: UNK, Q2M 600/900, INJECTABLE
     Route: 065
     Dates: start: 20230927

REACTIONS (2)
  - CD4 lymphocytes decreased [Unknown]
  - CD8 lymphocytes decreased [Unknown]

NARRATIVE: CASE EVENT DATE: 20231002
